FAERS Safety Report 8257451-7 (Version None)
Quarter: 2012Q1

REPORT INFORMATION
  Report Type: 
  Country: None (occurrence: None)
  Receive Date: 20120330
  Receipt Date: 20120330
  Transmission Date: 20120608
  Serious: Yes (Other)
  Sender: FDA-Public Use
  Company Number: None

PATIENT
  Age: 24 Year
  Sex: Male
  Weight: 72.5755 kg

DRUGS (1)
  1. FERAHEME [Suspect]
     Indication: IRON DEFICIENCY
     Dosage: 510 MG 1 TIME IV
     Route: 042
     Dates: start: 20120315

REACTIONS (1)
  - CHROMATURIA [None]
